FAERS Safety Report 7245613-7 (Version None)
Quarter: 2011Q1

REPORT INFORMATION
  Report Type: 
  Country: None (occurrence: None)
  Receive Date: 20110126
  Receipt Date: 20110112
  Transmission Date: 20110831
  Serious: Yes (Other)
  Sender: FDA-Public Use
  Company Number: PHHY2011NL03836

PATIENT
  Sex: Male

DRUGS (3)
  1. GABAPENTIN [Suspect]
     Dosage: 4 DF,DAILY
     Route: 048
     Dates: start: 20101028
  2. GABAPENTIN [Suspect]
     Dosage: 4 DF, DAILY
     Route: 048
     Dates: end: 20101130
  3. BACLOFEN [Concomitant]

REACTIONS (3)
  - PETIT MAL EPILEPSY [None]
  - PARAESTHESIA [None]
  - SLEEP DISORDER [None]
